FAERS Safety Report 8365936-8 (Version None)
Quarter: 2012Q2

REPORT INFORMATION
  Report Type: 
  Country: None (occurrence: None)
  Receive Date: 20120517
  Receipt Date: 20120514
  Transmission Date: 20120825
  Serious: Yes (Other)
  Sender: FDA-Public Use
  Company Number: US-PFIZER INC-2012117377

PATIENT
  Sex: Male
  Weight: 105.67 kg

DRUGS (5)
  1. LIPITOR [Suspect]
     Indication: BLOOD CHOLESTEROL INCREASED
     Dosage: 10 MG, 1X/DAY
     Route: 048
  2. HYZAAR [Concomitant]
     Indication: HYPERTENSION
     Dosage: [LOSARTAN POTASSIUM 100MG]/[HYDROCHLOROTHIAZIDE 25MG], UNK
  3. LIPITOR [Suspect]
     Indication: CARDIOVASCULAR EVENT PROPHYLAXIS
  4. LOVAZA [Concomitant]
     Indication: VITAMIN SUPPLEMENTATION
     Dosage: 2000 MG (TWO OF 1000MG), 2X/DAY
  5. TOPROL-XL [Concomitant]
     Indication: HYPERTENSION
     Dosage: 50 MG, UNK

REACTIONS (4)
  - FATIGUE [None]
  - DRY MOUTH [None]
  - BLOOD GLUCOSE INCREASED [None]
  - HEPATIC FUNCTION ABNORMAL [None]
